FAERS Safety Report 8163245-3 (Version None)
Quarter: 2012Q1

REPORT INFORMATION
  Report Type: 
  Country: None (occurrence: None)
  Receive Date: 20120224
  Receipt Date: 20110401
  Transmission Date: 20120608
  Serious: No
  Sender: FDA-Public Use
  Company Number: US-PFIZER INC-K201100381

PATIENT
  Age: 84 Year
  Sex: Female
  Weight: 68.027 kg

DRUGS (8)
  1. ADVAIR DISKUS 100/50 [Concomitant]
     Indication: ASTHMA
     Dosage: UNK
  2. GABAPENTIN [Concomitant]
     Indication: BACK PAIN
     Dosage: UNK
  3. NORCO [Concomitant]
     Indication: BACK PAIN
     Dosage: UNK
  4. AVAPRO [Concomitant]
     Indication: HYPERTENSION
     Dosage: UNK
  5. FLECTOR [Suspect]
     Indication: BACK PAIN
     Dosage: 1 PATCH EVERY 12 HOURS
     Route: 061
     Dates: start: 20110301, end: 20110301
  6. FLECTOR [Suspect]
     Dosage: UNK
     Route: 061
     Dates: start: 20110329, end: 20110401
  7. ZETIA [Concomitant]
     Dosage: UNK
  8. SINGULAIR [Concomitant]
     Indication: ASTHMA
     Dosage: UNK

REACTIONS (2)
  - APPLICATION SITE PRURITUS [None]
  - APPLICATION SITE RASH [None]
